FAERS Safety Report 7055732-6 (Version None)
Quarter: 2010Q4

REPORT INFORMATION
  Report Type: 
  Country: None (occurrence: None)
  Receive Date: 20101021
  Receipt Date: 20101006
  Transmission Date: 20110411
  Serious: Yes (Hospitalization, Other)
  Sender: FDA-Public Use
  Company Number: JP-ROCHE-729875

PATIENT
  Sex: Female
  Weight: 46 kg

DRUGS (5)
  1. HERCEPTIN [Suspect]
     Indication: BREAST CANCER METASTATIC
     Route: 041
     Dates: start: 20090619, end: 20090619
  2. HERCEPTIN [Suspect]
     Route: 041
     Dates: end: 20100426
  3. HERCEPTIN [Suspect]
     Route: 041
     Dates: start: 20100924
  4. ZOMETA [Concomitant]
     Route: 041
     Dates: start: 20080402
  5. TS-1 [Concomitant]
     Route: 048
     Dates: start: 20091217

REACTIONS (3)
  - CHILLS [None]
  - CYANOSIS [None]
  - PYREXIA [None]
